FAERS Safety Report 9743337 (Version 3)
Quarter: 2013Q4

REPORT INFORMATION
  Report Type: Spontaneous
  Country: US (occurrence: US)
  Receive Date: 20131210
  Receipt Date: 20131226
  Transmission Date: 20140711
  Serious: Yes (Hospitalization)
  Sender: FDA-Public Use
  Company Number: US-BAXTER-2013BAX045786

PATIENT
  Sex: Male

DRUGS (1)
  1. DIANEAL PD2 [Suspect]
     Indication: PERITONEAL DIALYSIS
     Dosage: 4 BAGS
     Route: 033

REACTIONS (2)
  - Peritonitis bacterial [Recovered/Resolved]
  - Dehydration [Unknown]
